FAERS Safety Report 4380913-X (Version None)
Quarter: 2004Q2

REPORT INFORMATION
  Report Type: 
  Country: None (occurrence: None)
  Receive Date: 20040616
  Receipt Date: 20040607
  Transmission Date: 20050107
  Serious: Yes (Hospitalization)
  Sender: FDA-Public Use
  Company Number: 2004038396

PATIENT
  Age: 69 Year
  Sex: Female

DRUGS (3)
  1. CITALOR (ATORVASTATIN) [Suspect]
     Indication: HYPERCHOLESTEROLAEMIA
     Dosage: (1 IN 1 D) ORAL
     Route: 048
  2. CHLORTALIDONE [Concomitant]
  3. CIPROFLOXACIN [Concomitant]

REACTIONS (3)
  - ANKLE FRACTURE [None]
  - OPEN FRACTURE [None]
  - STOMACH DISCOMFORT [None]
